FAERS Safety Report 25435102 (Version 1)
Quarter: 2025Q2

REPORT INFORMATION
  Report Type: Spontaneous
  Country: CN (occurrence: CN)
  Receive Date: 20250613
  Receipt Date: 20250613
  Transmission Date: 20250716
  Serious: Yes (Other)
  Sender: ELI LILLY AND COMPANY
  Company Number: CN-ELI_LILLY_AND_COMPANY-CN202506004577

PATIENT
  Age: 53 Year
  Sex: Male
  Weight: 44.8 kg

DRUGS (6)
  1. RAMUCIRUMAB [Suspect]
     Active Substance: RAMUCIRUMAB
     Indication: Gastric cancer
     Dosage: 350 MG, DAILY (AT ONCE A DAY)
     Route: 041
     Dates: start: 20250305, end: 20250305
  2. SINTILIMAB [Suspect]
     Active Substance: SINTILIMAB
     Indication: Gastric cancer
     Dosage: 200 MG, DAILY (AT ONCE A DAY)
     Route: 041
     Dates: start: 20250305, end: 20250305
  3. OXALIPLATIN [Suspect]
     Active Substance: OXALIPLATIN
     Indication: Gastric cancer
     Dosage: 110 MG, DAILY (AT ONCE A DAY)
     Route: 041
     Dates: start: 20250305, end: 20250305
  4. FLUOROURACIL [Suspect]
     Active Substance: FLUOROURACIL
     Indication: Gastric cancer
     Dosage: 500 MG, DAILY (AT ONCE A DAY)
     Route: 041
     Dates: start: 20250305, end: 20250305
  5. FLUOROURACIL [Suspect]
     Active Substance: FLUOROURACIL
     Dosage: 300 MG, DAILY (AT ONCE A DAY)
     Route: 041
     Dates: start: 20250305, end: 20250305
  6. LEUCOVORIN CALCIUM [Concomitant]
     Active Substance: LEUCOVORIN CALCIUM
     Indication: Gastric cancer
     Dosage: 500 MG, DAILY (AT ONCE A DAY)
     Route: 041
     Dates: start: 20250305, end: 20250305

REACTIONS (1)
  - Nephropathy toxic [Recovering/Resolving]

NARRATIVE: CASE EVENT DATE: 20250511
